FAERS Safety Report 13715323 (Version 1)
Quarter: 2017Q3

REPORT INFORMATION
  Report Type: Spontaneous
  Country: ES (occurrence: ES)
  Receive Date: 20170704
  Receipt Date: 20170704
  Transmission Date: 20171127
  Serious: Yes (Life-Threatening, Hospitalization)
  Sender: FDA-Public Use
  Company Number: ES-TEVA-781135ISR

PATIENT
  Age: 51 Year
  Sex: Male

DRUGS (3)
  1. FLOXURIDINA [Suspect]
     Active Substance: FLOXURIDINE
     Indication: INVASIVE DUCTAL BREAST CARCINOMA
     Route: 042
  2. MYOCET 50 MG POLVO Y PREMEZCLAS CONCENTRADO PARA DISPERSION LIPOSOMICA [Suspect]
     Active Substance: DOXORUBICIN
     Indication: INVASIVE DUCTAL BREAST CARCINOMA
     Route: 042
     Dates: start: 2017, end: 2017
  3. IRINOTECAN [Suspect]
     Active Substance: IRINOTECAN

REACTIONS (1)
  - Pneumonitis [Recovering/Resolving]

NARRATIVE: CASE EVENT DATE: 20170127
